FAERS Safety Report 4917212-0 (Version None)
Quarter: 2006Q1

REPORT INFORMATION
  Report Type: 
  Country: None (occurrence: None)
  Receive Date: 20060221
  Receipt Date: 20060215
  Transmission Date: 20060701
  Serious: Yes (Death, Hospitalization)
  Sender: FDA-Public Use
  Company Number: US-JNJFOC-20060203768

PATIENT
  Age: 32 Year
  Sex: Female
  Weight: 54.43 kg

DRUGS (4)
  1. EXTRA STRENGTH TYLENOL [Suspect]
     Route: 048
  2. EXTRA STRENGTH TYLENOL [Suspect]
     Indication: SLEEP DISORDER
     Dosage: 7-8 IN THE MORNING AND THROUGHOUT THE DAY.
     Route: 048
  3. CANADIAN CLUB WHISKEY [Suspect]
     Indication: DRUG USE FOR UNKNOWN INDICATION
  4. UNSPECIFIED DRUGS [Concomitant]

REACTIONS (6)
  - ABASIA [None]
  - DRUG ABUSER [None]
  - FAECES DISCOLOURED [None]
  - HEPATIC FAILURE [None]
  - INTENTIONAL OVERDOSE [None]
  - SPEECH DISORDER [None]
